FAERS Safety Report 4736166-3 (Version None)
Quarter: 2005Q3

REPORT INFORMATION
  Report Type: 
  Country: None (occurrence: None)
  Receive Date: 20050728
  Receipt Date: 20050422
  Transmission Date: 20060218
  Serious: Yes (Hospitalization)
  Sender: FDA-Public Use
  Company Number: 200510491US

PATIENT
  Age: 77 Year
  Sex: Female

DRUGS (5)
  1. KETEK [Suspect]
     Indication: SINUSITIS
     Dosage: 800 MG QD PO
     Route: 048
     Dates: start: 20050112, end: 20050113
  2. KETEK [Suspect]
     Indication: VERTIGO
     Dosage: 800 MG QD PO
     Route: 048
     Dates: start: 20050112, end: 20050113
  3. DESLORATADINE [Concomitant]
  4. MECLIZINE [Concomitant]
  5. FAMOTIDINE [Concomitant]

REACTIONS (4)
  - DIZZINESS [None]
  - ELECTROCARDIOGRAM QT CORRECTED INTERVAL PROLONGED [None]
  - HYPERSENSITIVITY [None]
  - HYPOAESTHESIA [None]
